FAERS Safety Report 8112798-X (Version None)
Quarter: 2012Q1

REPORT INFORMATION
  Report Type: 
  Country: None (occurrence: None)
  Receive Date: 20120203
  Receipt Date: 20120123
  Transmission Date: 20120608
  Serious: Yes (Hospitalization)
  Sender: FDA-Public Use
  Company Number: BR-BRISTOL-MYERS SQUIBB COMPANY-16362212

PATIENT
  Age: 57 Year
  Sex: Male

DRUGS (4)
  1. CARBIDOPA + LEVODOPA [Suspect]
     Indication: PARKINSON'S DISEASE
  2. CLONAZEPAM [Concomitant]
  3. AMITRIPTYLINE HCL [Concomitant]
  4. AMANTADINE HCL [Concomitant]

REACTIONS (1)
  - DOPAMINE DYSREGULATION SYNDROME [None]
